FAERS Safety Report 26134976 (Version 1)
Quarter: 2025Q4

REPORT INFORMATION
  Report Type: Spontaneous
  Country: EU (occurrence: EU)
  Receive Date: 20251209
  Receipt Date: 20251209
  Transmission Date: 20260118
  Serious: Yes (Other)
  Sender: BOEHRINGER INGELHEIM
  Company Number: EU-BoehringerIngelheim-2025-BI-111127

PATIENT
  Age: 55 Year
  Sex: Female
  Weight: 77 kg

DRUGS (4)
  1. NINTEDANIB [Suspect]
     Active Substance: NINTEDANIB
     Indication: Interstitial lung disease
     Dates: start: 202506
  2. NINTEDANIB [Suspect]
     Active Substance: NINTEDANIB
     Indication: Lymphadenitis
  3. NINTEDANIB [Suspect]
     Active Substance: NINTEDANIB
     Indication: Hypersensitivity pneumonitis
  4. AMBROXOL [Concomitant]
     Active Substance: AMBROXOL
     Dosage: 1-0-1

REACTIONS (10)
  - Respiratory failure [Unknown]
  - Hypersensitivity pneumonitis [Unknown]
  - Pulmonary fibrosis [Unknown]
  - Chest discomfort [Unknown]
  - Exercise tolerance decreased [Unknown]
  - Disease progression [Unknown]
  - Lung opacity [Unknown]
  - Bronchiectasis [Unknown]
  - Lung opacity [Unknown]
  - Cough [Unknown]
